FAERS Safety Report 21368381 (Version 2)
Quarter: 2023Q1

REPORT INFORMATION
  Report Type: Spontaneous
  Country: GB (occurrence: GB)
  Receive Date: 20220923
  Receipt Date: 20230227
  Transmission Date: 20230417
  Serious: Yes (Other)
  Sender: FDA-Public Use
  Company Number: GB-JNJFOC-20220930662

PATIENT
  Sex: Male

DRUGS (5)
  1. RISPERDAL CONSTA [Suspect]
     Active Substance: RISPERIDONE
     Indication: Product used for unknown indication
     Route: 065
  2. RISPERDAL CONSTA [Suspect]
     Active Substance: RISPERIDONE
  3. RISPERDAL CONSTA [Suspect]
     Active Substance: RISPERIDONE
  4. RISPERDAL CONSTA [Suspect]
     Active Substance: RISPERIDONE
  5. RISPERIDONE [Suspect]
     Active Substance: RISPERIDONE
     Indication: Product used for unknown indication
     Route: 065

REACTIONS (4)
  - Atrial fibrillation [Unknown]
  - Erectile dysfunction [Unknown]
  - Transient ischaemic attack [Unknown]
  - Hallucination, visual [Unknown]
